FAERS Safety Report 25185569 (Version 1)
Quarter: 2025Q2

REPORT INFORMATION
  Report Type: Report from Study
  Country: CA (occurrence: CA)
  Receive Date: 20250410
  Receipt Date: 20250410
  Transmission Date: 20250716
  Serious: Yes (Other)
  Sender: ALEXION PHARMACEUTICALS
  Company Number: CA-AstraZeneca-CH-00841005A

PATIENT

DRUGS (10)
  1. TEZEPELUMAB [Suspect]
     Active Substance: TEZEPELUMAB
     Indication: Asthma
  2. BILASTINE [Concomitant]
     Active Substance: BILASTINE
     Route: 065
  3. OMNARIS [Concomitant]
     Active Substance: CICLESONIDE
     Route: 065
  4. PANTOPRAZOLE [Concomitant]
     Active Substance: PANTOPRAZOLE
     Route: 065
  5. SALINE [Concomitant]
     Active Substance: SODIUM CHLORIDE
  6. SPIRIVA RESPIMAT [Concomitant]
     Active Substance: TIOTROPIUM BROMIDE
     Route: 065
  7. VENTOLIN [Concomitant]
     Active Substance: ALBUTEROL SULFATE
     Route: 065
  8. ZENHALE [Concomitant]
     Active Substance: FORMOTEROL FUMARATE\MOMETASONE FUROATE
     Route: 065
  9. PREDNISONE [Concomitant]
     Active Substance: PREDNISONE
     Route: 065
  10. GLYCOPYRROLATE\INDACATEROL\MOMETASONE FUROATE [Concomitant]
     Active Substance: GLYCOPYRROLATE\INDACATEROL\MOMETASONE FUROATE
     Route: 065

REACTIONS (8)
  - Lower respiratory tract infection [Unknown]
  - Asthma [Unknown]
  - Respiratory tract infection [Unknown]
  - Productive cough [Unknown]
  - Gastrooesophageal reflux disease [Unknown]
  - Laryngeal injury [Unknown]
  - Sinus disorder [Unknown]
  - Pharyngeal injury [Unknown]
